FAERS Safety Report 9700083 (Version 1)
Quarter: 2013Q4

REPORT INFORMATION
  Report Type: Spontaneous
  Country: US (occurrence: US)
  Receive Date: 20131121
  Receipt Date: 20131121
  Transmission Date: 20140711
  Serious: Yes (Other)
  Sender: FDA-Public Use
  Company Number: US-AMGEN-USASP2013081190

PATIENT
  Age: 59 Year
  Sex: Female

DRUGS (11)
  1. PROLIA [Suspect]
     Indication: OSTEOPOROSIS POSTMENOPAUSAL
     Dosage: UNK
     Route: 065
     Dates: start: 20130926
  2. ASPIRIN [Concomitant]
     Dosage: 325 MG, UNK
  3. CALCIUM [Concomitant]
     Dosage: 1200 UNK, UNK
  4. CENTRUM SILVER                     /02363801/ [Concomitant]
  5. CLONIDINE [Concomitant]
  6. EFFEXOR [Concomitant]
  7. ENALAPRIL [Concomitant]
  8. PLAQUENIL                          /00072602/ [Concomitant]
  9. NEXIUM                             /01479302/ [Concomitant]
  10. LORTAB                             /00607101/ [Concomitant]
  11. SYNTHROID [Concomitant]

REACTIONS (4)
  - Urinary tract infection [Unknown]
  - Abdominal pain upper [Unknown]
  - Blood urine present [Unknown]
  - Gastrointestinal infection [Unknown]
